FAERS Safety Report 5015738-5 (Version None)
Quarter: 2006Q2

REPORT INFORMATION
  Report Type: 
  Country: None (occurrence: None)
  Receive Date: 20060526
  Receipt Date: 20060518
  Transmission Date: 20061013
  Serious: Yes (Other)
  Sender: FDA-Public Use
  Company Number: 224355

PATIENT
  Age: 59 Year
  Sex: Male
  Weight: 127 kg

DRUGS (14)
  1. XOLAIR [Suspect]
     Indication: ASTHMA
     Dosage: 375 MG, Q2W, SUBCUTANEOUS
     Route: 058
     Dates: start: 20050306
  2. STEROID (INGREDIENTS) (STEROID NOS) [Concomitant]
  3. QVAR 40 [Concomitant]
  4. ADVAIR DISKUS 100/50 [Concomitant]
  5. NASONEX [Concomitant]
  6. ASPIRIN [Concomitant]
  7. PLAVIX [Concomitant]
  8. RHINOCORT [Concomitant]
  9. CITRUCEL (METHYLCELLULOSE) [Concomitant]
  10. ALLFEN-DM (DEXTROMETHORPHAN HYDROBROMIDE, GUAIFENESIN) [Concomitant]
  11. OMEPRAZOLE [Concomitant]
  12. VYTORIN [Concomitant]
  13. PROVENTIL (ALBUTEROL/ALBUTEROL SULFATE) [Concomitant]
  14. XOPENEX [Concomitant]

REACTIONS (2)
  - DEAFNESS NEUROSENSORY [None]
  - INFLAMMATION [None]
